FAERS Safety Report 16324325 (Version 1)
Quarter: 2019Q2

REPORT INFORMATION
  Report Type: Spontaneous
  Country: US (occurrence: US)
  Receive Date: 20190411
  Receipt Date: 20190411
  Transmission Date: 20190711
  Serious: Yes (Hospitalization)
  Sender: FDA-Public Use
  Company Number: None

PATIENT
  Age: 63 Year
  Sex: Female

DRUGS (1)
  1. IMATINIB 400MG TAB (X30) [Suspect]
     Active Substance: IMATINIB
     Route: 048
     Dates: start: 20190219

REACTIONS (4)
  - Decreased appetite [None]
  - Nausea [None]
  - Peripheral swelling [None]
  - Blood potassium decreased [None]

NARRATIVE: CASE EVENT DATE: 20190411
